FAERS Safety Report 13019783 (Version 1)
Quarter: 2016Q4

REPORT INFORMATION
  Report Type: Spontaneous
  Country: US (occurrence: US)
  Receive Date: 20161212
  Receipt Date: 20161212
  Transmission Date: 20170207
  Serious: No
  Sender: FDA-Public Use
  Company Number: US-ROCHE-1819381

PATIENT
  Sex: Male
  Weight: 117.93 kg

DRUGS (4)
  1. LIPITOR [Concomitant]
     Active Substance: ATORVASTATIN CALCIUM
     Indication: BLOOD CHOLESTEROL INCREASED
     Dosage: HAS BEEN OUT OF THIS MEDICATION FOR ABOUT 5 DAYS TOO.
     Route: 065
     Dates: start: 2015
  2. EFFEXOR [Concomitant]
     Active Substance: VENLAFAXINE HYDROCHLORIDE
     Dosage: TAKES A 75MG AND A 34.5MG ONCE A DAY
     Route: 065
     Dates: start: 2012
  3. REVATIO [Suspect]
     Active Substance: SILDENAFIL CITRATE
     Indication: HYPERTENSION
     Route: 065
     Dates: start: 2015
  4. VALIUM [Suspect]
     Active Substance: DIAZEPAM
     Indication: SLEEP DISORDER
     Dosage: AT NIGHT
     Route: 065
     Dates: start: 2012

REACTIONS (2)
  - Blood pressure increased [Unknown]
  - Drug ineffective [Unknown]
